FAERS Safety Report 20623435 (Version 2)
Quarter: 2022Q1

REPORT INFORMATION
  Report Type: Spontaneous
  Country: DE (occurrence: DE)
  Receive Date: 20220322
  Receipt Date: 20220324
  Transmission Date: 20220424
  Serious: Yes (Hospitalization, Other)
  Sender: FDA-Public Use
  Company Number: DE-WOERWAG PHARMA GMBH-22032

PATIENT
  Age: 69 Year
  Sex: Male
  Weight: 101 kg

DRUGS (3)
  1. PHENPROCOUMON [Suspect]
     Active Substance: PHENPROCOUMON
     Indication: Product used for unknown indication
     Route: 065
     Dates: start: 2016, end: 20200327
  2. CLOPIDOGREL [Suspect]
     Active Substance: CLOPIDOGREL BISULFATE
     Indication: Product used for unknown indication
     Route: 065
     Dates: start: 201804, end: 20200327
  3. SEMAGLUTIDE [Suspect]
     Active Substance: SEMAGLUTIDE
     Indication: Type 2 diabetes mellitus
     Dosage: 1 DF, 1 WEEK, BLINDED SEMAGLUTIDE (CODE NOT BROKEN)
     Route: 058
     Dates: start: 20191223

REACTIONS (9)
  - Large intestine polyp [Not Recovered/Not Resolved]
  - Iron deficiency anaemia [Recovered/Resolved]
  - Large intestine polyp [Not Recovered/Not Resolved]
  - Gingival bleeding [Recovered/Resolved]
  - Hiatus hernia [Not Recovered/Not Resolved]
  - Diverticulum [Not Recovered/Not Resolved]
  - Large intestine polyp [Not Recovered/Not Resolved]
  - Periodontitis [Unknown]
  - Melaena [Recovered/Resolved]

NARRATIVE: CASE EVENT DATE: 20200322
